FAERS Safety Report 15103814 (Version 2)
Quarter: 2018Q4

REPORT INFORMATION
  Report Type: Spontaneous
  Country: US (occurrence: US)
  Receive Date: 20180703
  Receipt Date: 20181210
  Transmission Date: 20190204
  Serious: Yes (Hospitalization)
  Sender: FDA-Public Use
  Company Number: US-OTSUKA-2018_018114

PATIENT
  Sex: Female

DRUGS (1)
  1. ABILIFY [Suspect]
     Active Substance: ARIPIPRAZOLE
     Indication: BIPOLAR DISORDER
     Dosage: 15 MG, QD
     Route: 065
     Dates: start: 2002, end: 2013

REACTIONS (8)
  - Mental disorder [Unknown]
  - Compulsive shopping [Unknown]
  - Gambling disorder [Recovering/Resolving]
  - Economic problem [Unknown]
  - Homeless [Unknown]
  - Bankruptcy [Unknown]
  - Compulsive sexual behaviour [Unknown]
  - Alcoholism [Unknown]

NARRATIVE: CASE EVENT DATE: 2002
